FAERS Safety Report 19240971 (Version 1)
Quarter: 2021Q2

REPORT INFORMATION
  Report Type: Spontaneous
  Country: DE (occurrence: DE)
  Receive Date: 20210511
  Receipt Date: 20210511
  Transmission Date: 20210717
  Serious: Yes (Other)
  Sender: FDA-Public Use
  Company Number: DE-NOVOPROD-810418

PATIENT
  Age: 63 Year
  Sex: Male
  Weight: 87 kg

DRUGS (1)
  1. TRESIBA [Suspect]
     Active Substance: INSULIN DEGLUDEC
     Indication: TYPE 2 DIABETES MELLITUS
     Dosage: 10 EINHEITEN / TAG
     Route: 058
     Dates: start: 201902, end: 201906

REACTIONS (4)
  - Alopecia [Recovering/Resolving]
  - Balance disorder [Recovering/Resolving]
  - Taste disorder [Recovering/Resolving]
  - Phimosis [Recovering/Resolving]

NARRATIVE: CASE EVENT DATE: 2019
